FAERS Safety Report 12411916 (Version 1)
Quarter: 2016Q2

REPORT INFORMATION
  Report Type: Report from Study
  Country: BR (occurrence: BR)
  Receive Date: 20160527
  Receipt Date: 20160527
  Transmission Date: 20160815
  Serious: Yes (Other)
  Sender: FDA-Public Use
  Company Number: BR-JNJFOC-20160327575

PATIENT
  Sex: Male

DRUGS (8)
  1. TENSALIV [Concomitant]
     Active Substance: AMLODIPINE BESYLATE
     Route: 065
  2. NEXIUM [Concomitant]
     Active Substance: ESOMEPRAZOLE MAGNESIUM
     Route: 065
  3. GARDENAL [Interacting]
     Active Substance: PHENOBARBITAL
     Indication: SEIZURE
     Route: 065
  4. LIPLESS [Concomitant]
     Active Substance: CIPROFIBRATE
     Route: 065
  5. TEGRETOL [Interacting]
     Active Substance: CARBAMAZEPINE
     Indication: SEIZURE
     Route: 065
  6. SELOZOK [Concomitant]
     Active Substance: METOPROLOL SUCCINATE
     Route: 065
  7. IMBRUVICA [Suspect]
     Active Substance: IBRUTINIB
     Indication: CHRONIC LYMPHOCYTIC LEUKAEMIA
     Dosage: 3 DOSAGES
     Route: 048
     Dates: start: 20160215
  8. CENTRUM [Concomitant]
     Active Substance: VITAMINS
     Route: 065

REACTIONS (4)
  - Drug interaction [Unknown]
  - Malaise [Unknown]
  - Weight decreased [Not Recovered/Not Resolved]
  - Therapeutic response unexpected [Unknown]
